FAERS Safety Report 4644086-8 (Version None)
Quarter: 2005Q2

REPORT INFORMATION
  Report Type: 
  Country: None (occurrence: None)
  Receive Date: 20050425
  Receipt Date: 20050321
  Transmission Date: 20051028
  Serious: Yes (Other)
  Sender: FDA-Public Use
  Company Number: PHEH2005US03530

PATIENT
  Age: 43 Year
  Sex: Male
  Weight: 66 kg

DRUGS (2)
  1. ELIDEL [Suspect]
     Indication: ECZEMA
     Dosage: UNK, BID
     Route: 061
     Dates: start: 20040217, end: 20040401
  2. MULTI-VITAMINS [Concomitant]

REACTIONS (12)
  - ANXIETY [None]
  - B-CELL LYMPHOMA [None]
  - CHEST DISCOMFORT [None]
  - CHEST PAIN [None]
  - DEEP VEIN THROMBOSIS [None]
  - FATIGUE [None]
  - HAEMANGIOMA OF LIVER [None]
  - HYPERHIDROSIS [None]
  - LIMB DISCOMFORT [None]
  - MEDIASTINAL MASS [None]
  - OEDEMA PERIPHERAL [None]
  - WEIGHT DECREASED [None]
